FAERS Safety Report 8775344 (Version 1)
Quarter: 2012Q4

REPORT INFORMATION
  Report Type: 
  Country: MK (occurrence: MK)
  Receive Date: 20120910
  Receipt Date: 20120910
  Transmission Date: 20130627
  Serious: Yes (Death)
  Sender: FDA-Public Use
  Company Number: MK-ASTRAZENECA-2012SE69988

PATIENT
  Age: 12 Year
  Sex: Male

DRUGS (2)
  1. PROPOFOL [Suspect]
     Indication: GENERAL ANAESTHESIA
     Route: 042
  2. FENTANYL [Concomitant]
     Indication: GENERAL ANAESTHESIA

REACTIONS (1)
  - Disseminated intravascular coagulation [Fatal]
